FAERS Safety Report 24642198 (Version 1)
Quarter: 2024Q4

REPORT INFORMATION
  Report Type: Spontaneous
  Country: US (occurrence: None)
  Receive Date: 20241119
  Receipt Date: 20241119
  Transmission Date: 20250115
  Serious: Yes (Other)
  Sender: Public
  Company Number: None

PATIENT
  Age: 61 Year
  Sex: Female
  Weight: 67.5 kg

DRUGS (17)
  1. MOUNJARO [Suspect]
     Active Substance: TIRZEPATIDE
     Indication: Diabetes mellitus
     Dates: start: 20230601
  2. MOUNJARO [Suspect]
     Active Substance: TIRZEPATIDE
     Indication: Obesity
  3. MOUNJARO [Suspect]
     Active Substance: TIRZEPATIDE
     Indication: Obesity
  4. MOUNJARO [Suspect]
     Active Substance: TIRZEPATIDE
     Indication: Obesity
  5. MOUNJARO [Suspect]
     Active Substance: TIRZEPATIDE
     Indication: Obesity
  6. ATORVASTATIN [Concomitant]
  7. ALBUterol sulfate HFA 108 (90 Base) MCG/ACT inhaler [Concomitant]
  8. acetaminophen-codeine [Concomitant]
  9. CALCITRIOL [Concomitant]
  10. tirzepatide [Concomitant]
  11. ATROPINE\DIPHENOXYLATE [Concomitant]
     Active Substance: ATROPINE\DIPHENOXYLATE
  12. MONTELUKAST [Concomitant]
  13. CALCIUM ACETATE [Concomitant]
  14. HYDROXYZINE HCL [Concomitant]
  15. VORTIOXETINE [Concomitant]
     Active Substance: VORTIOXETINE
  16. BIOTIN [Concomitant]
  17. IRON [Concomitant]
     Active Substance: IRON

REACTIONS (1)
  - Gastrolithiasis [None]

NARRATIVE: CASE EVENT DATE: 20240614
